FAERS Safety Report 21511952 (Version 1)
Quarter: 2022Q4

REPORT INFORMATION
  Report Type: Spontaneous
  Country: EG (occurrence: None)
  Receive Date: 20221027
  Receipt Date: 20221027
  Transmission Date: 20230113
  Serious: Yes (Other)
  Sender: FDA-Public Use
  Company Number: EG-Hikma Pharmaceuticals-EG-H14001-22-02745

PATIENT
  Age: 16 Year
  Sex: Female

DRUGS (1)
  1. METHOTREXATE [Suspect]
     Active Substance: METHOTREXATE
     Indication: Uterine cancer
     Route: 041

REACTIONS (4)
  - Breath odour [Unknown]
  - Bone pain [Unknown]
  - Vaginal haemorrhage [Recovered/Resolved]
  - Foaming at mouth [Unknown]
